FAERS Safety Report 18341077 (Version 1)
Quarter: 2020Q4

REPORT INFORMATION
  Report Type: Spontaneous
  Country: ES (occurrence: ES)
  Receive Date: 20201003
  Receipt Date: 20201003
  Transmission Date: 20210113
  Serious: Yes (Hospitalization)
  Sender: FDA-Public Use
  Company Number: ES-ACCORD-203891

PATIENT
  Age: 86 Year
  Sex: Male

DRUGS (12)
  1. DUODART [Concomitant]
     Active Substance: DUTASTERIDE\TAMSULOSIN
     Dosage: STRENGTH: 0.5 / 0.4 MG, 30 CAPSULES
  2. XUMADOL [Concomitant]
     Dosage: STRENGTH: 1 G,  TABLETS EFG, 40 TABLETS
  3. CARBIDOPA/LEVODOPA [Concomitant]
     Active Substance: CARBIDOPA\LEVODOPA
  4. FUROSEMIDE. [Suspect]
     Active Substance: FUROSEMIDE
     Indication: CARDIAC FAILURE
     Dosage: STRENGTH: 40 MG
     Route: 048
     Dates: start: 20181110
  5. OMEPRAZOLE. [Concomitant]
     Active Substance: OMEPRAZOLE
     Dosage: STRENGTH: 40 MG
  6. ENALAPRIL [Suspect]
     Active Substance: ENALAPRIL
     Indication: HYPERTENSION
     Dosage: ENALAPRIL (2142A)
     Route: 048
     Dates: start: 20190719, end: 20200126
  7. ALTINAC [Concomitant]
     Dosage: STRENGTH: 1 MG TABLETS EFG, 30 TABLETS
  8. CALCIFEDIOL [Concomitant]
     Active Substance: CALCIFEDIOL
     Dosage: STRENGTH: 0.266 MG
  9. BISOPROLOL [Concomitant]
     Active Substance: BISOPROLOL
     Dosage: STRENGTH:5 MG
  10. ACENOCOUMAROL [Suspect]
     Active Substance: ACENOCOUMAROL
     Indication: ATRIAL FIBRILLATION
     Dosage: ACENOCOUMAROL (220A)
     Route: 048
     Dates: start: 20180704, end: 20200128
  11. CROMATONBIC B12 [Concomitant]
     Dosage: 1000 INJECTABLE, 8 AMPOULES OF 1 ML
  12. LINAGLIPTIN [Concomitant]
     Active Substance: LINAGLIPTIN
     Dosage: STRENGTH: 5 MG

REACTIONS (2)
  - Syncope [Recovered/Resolved]
  - Anaemia [Recovered/Resolved]

NARRATIVE: CASE EVENT DATE: 20200126
